FAERS Safety Report 24616106 (Version 1)
Quarter: 2024Q4

REPORT INFORMATION
  Report Type: Report from Study
  Country: CO (occurrence: CO)
  Receive Date: 20241113
  Receipt Date: 20241113
  Transmission Date: 20250114
  Serious: Yes (Other)
  Sender: ABBVIE
  Company Number: CO-ABBVIE-5711465

PATIENT
  Age: 26 Year
  Sex: Female
  Weight: 65 kg

DRUGS (1)
  1. SKYRIZI [Suspect]
     Active Substance: RISANKIZUMAB-RZAA
     Indication: Psoriasis
     Dosage: FORM STRENGTH 150 MILLIGRAM
     Route: 058
     Dates: start: 20230205, end: 20240109

REACTIONS (5)
  - Caesarean section [Recovered/Resolved]
  - Maternal exposure during pregnancy [Unknown]
  - Hormone level abnormal [Unknown]
  - Weight increased [Recovered/Resolved]
  - Live birth [Unknown]

NARRATIVE: CASE EVENT DATE: 20240101
